FAERS Safety Report 7389586-5 (Version None)
Quarter: 2011Q2

REPORT INFORMATION
  Report Type: 
  Country: None (occurrence: None)
  Receive Date: 20110401
  Receipt Date: 20110324
  Transmission Date: 20111010
  Serious: Yes (Other)
  Sender: FDA-Public Use
  Company Number: PHHY2011US24870

PATIENT
  Sex: Male

DRUGS (2)
  1. STALEVO 100 [Suspect]
     Dosage: 150 MG, QID
     Route: 048
  2. LORAZEPAM [Concomitant]

REACTIONS (8)
  - DYSPNOEA [None]
  - SPEECH DISORDER [None]
  - TREMOR [None]
  - ABDOMINAL PAIN [None]
  - DRUG EFFECT DECREASED [None]
  - DYSSTASIA [None]
  - FREEZING PHENOMENON [None]
  - PARALYSIS [None]
